FAERS Safety Report 22367333 (Version 2)
Quarter: 2023Q2

REPORT INFORMATION
  Report Type: Spontaneous
  Country: PL (occurrence: PL)
  Receive Date: 20230525
  Receipt Date: 20230608
  Transmission Date: 20230722
  Serious: Yes (Other)
  Sender: FDA-Public Use
  Company Number: PL-AMGEN-POLSP2023085663

PATIENT
  Age: 68 Year
  Sex: Male

DRUGS (6)
  1. CARFILZOMIB [Suspect]
     Active Substance: CARFILZOMIB
     Indication: Plasma cell myeloma
     Dosage: UNK
     Route: 065
     Dates: start: 2022
  2. DEXAMETHASONE [Suspect]
     Active Substance: DEXAMETHASONE
     Indication: Plasma cell myeloma
     Dosage: UNK
     Route: 065
     Dates: start: 2022
  3. CYTARABINE [Concomitant]
     Active Substance: CYTARABINE
     Indication: Plasma cell myeloma
     Dosage: UNK
     Dates: start: 202209
  4. IDARUBICIN [Concomitant]
     Active Substance: IDARUBICIN
     Indication: Plasma cell myeloma
     Dosage: UNK
     Dates: start: 202209
  5. MELPHALAN [Concomitant]
     Active Substance: MELPHALAN
     Indication: Plasma cell myeloma
     Dosage: UNK, HDM140
     Dates: start: 202210
  6. PAMIDRONATE [Concomitant]
     Active Substance: PAMIDRONATE DISODIUM
     Dosage: UNK UNK, Q3MO
     Route: 065

REACTIONS (4)
  - Polyneuropathy [Unknown]
  - Blood bilirubin increased [Unknown]
  - Therapy partial responder [Unknown]
  - Platelet count abnormal [Unknown]
